FAERS Safety Report 9786375 (Version 2)
Quarter: 2014Q1

REPORT INFORMATION
  Report Type: Spontaneous
  Country: IT (occurrence: None)
  Receive Date: 20131224
  Receipt Date: 20140106
  Transmission Date: 20141002
  Serious: Yes (Other)
  Sender: FDA-Public Use
  Company Number: AUR-APL-2013-10681

PATIENT
  Age: 68 Year
  Sex: Male

DRUGS (3)
  1. ATENOLOL [Suspect]
     Indication: HYPERTENSION
     Route: 048
     Dates: start: 20131118
  2. ZESTORETIC (ZESTORETIC) [Concomitant]
  3. CARDIOASPIRIN (ACETYLSALICYLIC ACID) [Concomitant]

REACTIONS (1)
  - Sinus bradycardia [None]
